FAERS Safety Report 21107223 (Version 2)
Quarter: 2022Q3

REPORT INFORMATION
  Report Type: Report from Study
  Country: US (occurrence: US)
  Receive Date: 20220720
  Receipt Date: 20220721
  Transmission Date: 20221027
  Serious: Yes (Death)
  Sender: FDA-Public Use
  Company Number: US-PFIZER INC-PV202200026549

PATIENT
  Age: 77 Year
  Sex: Female

DRUGS (1)
  1. IBRANCE [Suspect]
     Active Substance: PALBOCICLIB
     Indication: Breast cancer
     Dosage: 125 MG, CYCLIC (125 MG TABLET ONCE DAILY FOR 21 DAYS ON AND 7 DAYS OFF)
     Dates: start: 20220520

REACTIONS (1)
  - Death [Fatal]

NARRATIVE: CASE EVENT DATE: 20220715
